FAERS Safety Report 8266180-5 (Version None)
Quarter: 2012Q2

REPORT INFORMATION
  Report Type: 
  Country: None (occurrence: None)
  Receive Date: 20120406
  Receipt Date: 20120330
  Transmission Date: 20120825
  Serious: Yes (Hospitalization)
  Sender: FDA-Public Use
  Company Number: BR-PFIZER INC-2012083120

PATIENT
  Age: 29 Year
  Sex: Male

DRUGS (3)
  1. XALATAN [Suspect]
     Route: 047
  2. ATROPINE [Concomitant]
  3. AZOPT [Concomitant]

REACTIONS (1)
  - GLAUCOMA [None]
